FAERS Safety Report 4349745-2 (Version None)
Quarter: 2004Q2

REPORT INFORMATION
  Report Type: 
  Country: None (occurrence: None)
  Receive Date: 20040426
  Receipt Date: 20040411
  Transmission Date: 20050107
  Serious: Yes (Other)
  Sender: FDA-Public Use
  Company Number: 2004024610

PATIENT
  Sex: Female

DRUGS (2)
  1. NARDIL [Suspect]
     Indication: DEPRESSION
  2. THYROID TAB [Concomitant]

REACTIONS (7)
  - DRUG DEPENDENCE [None]
  - HALLUCINATION [None]
  - MALAISE [None]
  - PARALYSIS [None]
  - THYROID DISORDER [None]
  - WEIGHT FLUCTUATION [None]
  - WEIGHT LOSS POOR [None]
